FAERS Safety Report 9268481 (Version 1)
Quarter: 2013Q2

REPORT INFORMATION
  Report Type: Spontaneous
  Country: US (occurrence: US)
  Receive Date: 20130502
  Receipt Date: 20130502
  Transmission Date: 20140414
  Serious: Yes (Other)
  Sender: FDA-Public Use
  Company Number: US-BAXTER-2013BAX015832

PATIENT
  Age: 32 Year
  Sex: Female
  Weight: 46 kg

DRUGS (3)
  1. 5% DEXTROSE INJECTION (B. BRAUN MEDICAL INC.) [Suspect]
     Indication: PRODUCT USED FOR UNKNOWN INDICATION
     Route: 042
  2. DIAZEPAM [Concomitant]
     Indication: GRAND MAL CONVULSION
     Route: 042
  3. PHENYTOIN [Concomitant]
     Indication: GRAND MAL CONVULSION
     Route: 042

REACTIONS (1)
  - Hyponatraemia [Recovering/Resolving]
